FAERS Safety Report 9298437 (Version 1)
Quarter: 2013Q2

REPORT INFORMATION
  Report Type: Spontaneous
  Country: KR (occurrence: KR)
  Receive Date: 20130520
  Receipt Date: 20130520
  Transmission Date: 20140414
  Serious: Yes (Life-Threatening)
  Sender: FDA-Public Use
  Company Number: KR-ASTRAZENECA-2013SE33910

PATIENT
  Age: 80 Year
  Sex: Female
  Weight: 53 kg

DRUGS (9)
  1. PROPOFOL [Suspect]
     Indication: INDUCTION OF ANAESTHESIA
     Route: 040
  2. PROPOFOL [Suspect]
     Indication: SEDATION
     Route: 040
  3. PROPOFOL [Suspect]
     Indication: INDUCTION OF ANAESTHESIA
     Dosage: 50 UG/KG/MIN
     Route: 041
  4. PROPOFOL [Suspect]
     Indication: SEDATION
     Dosage: 50 UG/KG/MIN
     Route: 041
  5. GLYCOPYRROLATE [Concomitant]
     Indication: PREMEDICATION
     Route: 030
  6. ROCURONIUM [Concomitant]
  7. LIDOCAINE [Concomitant]
     Indication: INDUCTION OF ANAESTHESIA
  8. HYPERBARIC BUPIVACAINE [Concomitant]
     Indication: SPINAL ANAESTHESIA
     Route: 037
  9. MIDAZOLAM [Concomitant]
     Indication: SEDATION
     Route: 042

REACTIONS (1)
  - Atrioventricular block complete [Recovered/Resolved]
